FAERS Safety Report 12262763 (Version 1)
Quarter: 2016Q2

REPORT INFORMATION
  Report Type: Spontaneous
  Country: US (occurrence: None)
  Receive Date: 20160412
  Receipt Date: 20160412
  Transmission Date: 20160815
  Serious: Yes (Life-Threatening, Hospitalization)
  Sender: FDA-Public Use
  Company Number: None

PATIENT
  Age: 49 Year
  Sex: Female
  Weight: 126.1 kg

DRUGS (6)
  1. CITALOPRAM [Concomitant]
     Active Substance: CITALOPRAM HYDROBROMIDE
  2. ELIQUIS [Concomitant]
     Active Substance: APIXABAN
  3. FERROUS SULF [Concomitant]
  4. ACETAZOLAMIDE, 125 MG [Suspect]
     Active Substance: ACETAZOLAMIDE
     Indication: FLUID RETENTION
     Route: 048
     Dates: start: 20160219, end: 20160402
  5. LISINOPRIL/HCTZ [Concomitant]
     Active Substance: HYDROCHLOROTHIAZIDE\LISINOPRIL
  6. BUSPIRONE [Concomitant]
     Active Substance: BUSPIRONE HYDROCHLORIDE

REACTIONS (4)
  - Paraesthesia [None]
  - Hypoaesthesia [None]
  - Dyspnoea [None]
  - Pulmonary thrombosis [None]

NARRATIVE: CASE EVENT DATE: 20160404
